FAERS Safety Report 23575100 (Version 1)
Quarter: 2024Q1

REPORT INFORMATION
  Report Type: Spontaneous
  Country: FR (occurrence: FR)
  Receive Date: 20240228
  Receipt Date: 20240228
  Transmission Date: 20240410
  Serious: Yes (Other)
  Sender: FDA-Public Use
  Company Number: FR-GSKCCFEMEA-Case-01909855_AE-80032

PATIENT

DRUGS (1)
  1. LAMICTAL [Suspect]
     Active Substance: LAMOTRIGINE
     Indication: Product used for unknown indication
     Dosage: 400 MG

REACTIONS (4)
  - Bipolar disorder [Unknown]
  - Condition aggravated [Unknown]
  - Tremor [Unknown]
  - Loss of personal independence in daily activities [Unknown]
